FAERS Safety Report 7796769-9 (Version None)
Quarter: 2011Q4

REPORT INFORMATION
  Report Type: 
  Country: None (occurrence: None)
  Receive Date: 20111005
  Receipt Date: 20110929
  Transmission Date: 20120403
  Serious: Yes (Hospitalization, Other)
  Sender: FDA-Public Use
  Company Number: US-JNJFOC-20100806236

PATIENT
  Sex: Male

DRUGS (6)
  1. LEVAQUIN [Suspect]
     Route: 048
     Dates: start: 20070212
  2. AVELOX [Suspect]
     Indication: PNEUMONIA
     Route: 065
  3. AVELOX [Suspect]
     Indication: CHRONIC OBSTRUCTIVE PULMONARY DISEASE
     Route: 065
  4. LEVAQUIN [Suspect]
     Indication: CHRONIC OBSTRUCTIVE PULMONARY DISEASE
     Route: 048
     Dates: start: 20070212
  5. LEVAQUIN [Suspect]
     Route: 048
     Dates: start: 20080101, end: 20080101
  6. LEVAQUIN [Suspect]
     Indication: PNEUMONIA
     Route: 048
     Dates: start: 20080101, end: 20080101

REACTIONS (2)
  - ROTATOR CUFF SYNDROME [None]
  - TENDON RUPTURE [None]
